FAERS Safety Report 7183833-0 (Version None)
Quarter: 2010Q4

REPORT INFORMATION
  Report Type: 
  Country: None (occurrence: None)
  Receive Date: 20101220
  Receipt Date: 20101220
  Transmission Date: 20110411
  Serious: Yes (Life-Threatening, Hospitalization)
  Sender: FDA-Public Use
  Company Number: None

PATIENT
  Age: 67 Year
  Sex: Male
  Weight: 92.9874 kg

DRUGS (1)
  1. PROPOXYPHENE HCL AND ACETAMINOPHEN [Suspect]
     Indication: PAIN
     Dosage: 1/2 TABLETS 8 HOURS PO
     Route: 048
     Dates: start: 20100407, end: 20100630

REACTIONS (2)
  - ATRIAL FIBRILLATION [None]
  - KNEE ARTHROPLASTY [None]
